FAERS Safety Report 5339464-8 (Version None)
Quarter: 2007Q2

REPORT INFORMATION
  Report Type: 
  Country: None (occurrence: None)
  Receive Date: 20070404
  Receipt Date: 20061010
  Transmission Date: 20071010
  Serious: Yes (Other)
  Sender: FDA-Public Use
  Company Number: 2006054532

PATIENT
  Age: 26 Year
  Sex: Female

DRUGS (3)
  1. GEODON [Suspect]
     Dates: start: 20060401, end: 20060408
  2. LITHIUM CARBONATE [Concomitant]
  3. ANTIDEPRESSANTS (ANTIDEPRESSANTS) [Concomitant]

REACTIONS (4)
  - BORDERLINE PERSONALITY DISORDER [None]
  - COMPLEX PARTIAL SEIZURES [None]
  - GRAND MAL CONVULSION [None]
  - INSOMNIA [None]
